FAERS Safety Report 9712730 (Version 3)
Quarter: 2014Q2

REPORT INFORMATION
  Report Type: Spontaneous
  Country: US (occurrence: US)
  Receive Date: 20131126
  Receipt Date: 20140510
  Transmission Date: 20141212
  Serious: No
  Sender: FDA-Public Use
  Company Number: US-BRISTOL-MYERS SQUIBB COMPANY-19220532

PATIENT
  Age: 63 Year
  Sex: Male
  Weight: 81.63 kg

DRUGS (3)
  1. BYDUREON [Suspect]
     Indication: TYPE 2 DIABETES MELLITUS
     Dosage: 31JUL2013
     Route: 058
     Dates: start: 20130731
  2. GLIPIZIDE [Concomitant]
  3. METFORMIN [Concomitant]

REACTIONS (4)
  - Injection site mass [Recovered/Resolved]
  - Underdose [Unknown]
  - Drug administration error [Unknown]
  - Product quality issue [Unknown]
